FAERS Safety Report 7354074-9 (Version None)
Quarter: 2011Q1

REPORT INFORMATION
  Report Type: 
  Country: None (occurrence: None)
  Receive Date: 20110315
  Receipt Date: 20110228
  Transmission Date: 20110831
  Serious: Yes (Other)
  Sender: FDA-Public Use
  Company Number: CA-GENENTECH-296222

PATIENT
  Sex: Male
  Weight: 90.3 kg

DRUGS (4)
  1. XOLAIR [Suspect]
     Dosage: 375 MG, Q2W
     Route: 058
     Dates: start: 20091130
  2. XOLAIR [Suspect]
     Dosage: 375 MG, Q2W
     Route: 058
     Dates: start: 20100304
  3. XOLAIR [Suspect]
     Dosage: 375 MG, Q2W
     Route: 058
     Dates: start: 20100318
  4. XOLAIR [Suspect]
     Indication: ASTHMA
     Dosage: 375 MG, Q2W
     Route: 058
     Dates: start: 20090903

REACTIONS (13)
  - EAR CONGESTION [None]
  - NASOPHARYNGITIS [None]
  - GASTROENTERITIS VIRAL [None]
  - LOWER RESPIRATORY TRACT INFECTION [None]
  - NASAL CONGESTION [None]
  - RALES [None]
  - NASAL OPERATION [None]
  - NASAL POLYPECTOMY [None]
  - COUGH [None]
  - SLEEP APNOEA SYNDROME [None]
  - SINUS CONGESTION [None]
  - BRONCHITIS [None]
  - PRODUCTIVE COUGH [None]
